FAERS Safety Report 13259059 (Version 6)
Quarter: 2018Q2

REPORT INFORMATION
  Report Type: Report from Study
  Country: JP (occurrence: JP)
  Receive Date: 20170222
  Receipt Date: 20180615
  Transmission Date: 20180711
  Serious: Yes (Other)
  Sender: FDA-Public Use
  Company Number: JP-ROCHE-1895395

PATIENT
  Age: 68 Year
  Sex: Male
  Weight: 66 kg

DRUGS (52)
  1. RITUXIMAB. [Suspect]
     Active Substance: RITUXIMAB
     Route: 042
     Dates: start: 20160414, end: 20160414
  2. MYCOPHENOLATE MOFETIL. [Suspect]
     Active Substance: MYCOPHENOLATE MOFETIL
     Route: 048
     Dates: start: 20160707, end: 20160720
  3. MYCOPHENOLATE MOFETIL. [Suspect]
     Active Substance: MYCOPHENOLATE MOFETIL
     Route: 048
     Dates: start: 20160721, end: 20160831
  4. POLARAMINE [Concomitant]
     Active Substance: DEXCHLORPHENIRAMINE MALEATE
     Dosage: 01/MAR/2016, 25/MAR/2016, 14/APR/2016
     Route: 042
     Dates: start: 20160501, end: 20160501
  5. WARFARIN [Concomitant]
     Active Substance: WARFARIN
     Route: 048
     Dates: start: 20160224, end: 20160229
  6. WARFARIN [Concomitant]
     Active Substance: WARFARIN
     Route: 048
     Dates: start: 20160328, end: 20160413
  7. FUROSEMIDE. [Concomitant]
     Active Substance: FUROSEMIDE
     Indication: OEDEMA DUE TO RENAL DISEASE
     Route: 048
     Dates: start: 20160222, end: 20160225
  8. SODIUM PICOSULFATE [Concomitant]
     Active Substance: SODIUM PICOSULFATE
     Indication: CONSTIPATION
     Route: 048
     Dates: start: 20160223, end: 20160804
  9. LECICARBON (JAPAN) [Concomitant]
     Indication: CONSTIPATION
     Route: 054
     Dates: start: 20160305, end: 20160328
  10. MYCOPHENOLATE MOFETIL. [Suspect]
     Active Substance: MYCOPHENOLATE MOFETIL
     Route: 048
     Dates: start: 20160901, end: 20171011
  11. MEDROL [Suspect]
     Active Substance: METHYLPREDNISOLONE
     Route: 048
     Dates: start: 20070203
  12. POLARAMINE [Concomitant]
     Active Substance: DEXCHLORPHENIRAMINE MALEATE
     Dosage: 01/MAR/2016, 25/MAR/2016, 14/APR/2016
     Route: 042
     Dates: start: 20160216, end: 20160216
  13. POLARAMINE [Concomitant]
     Active Substance: DEXCHLORPHENIRAMINE MALEATE
     Dosage: 01/MAR/2016, 25/MAR/2016, 14/APR/2016
     Route: 042
     Dates: start: 20160301, end: 20160301
  14. THYRADIN [Concomitant]
     Active Substance: LEVOTHYROXINE
     Indication: HYPOTHYROIDISM
     Route: 048
     Dates: start: 20170201
  15. PRAVASTATIN NATRIUM [Concomitant]
     Indication: DYSLIPIDAEMIA
     Route: 048
     Dates: start: 20150829, end: 20161129
  16. DAIPHEN [Concomitant]
     Active Substance: SULFAMETHOXAZOLE\TRIMETHOPRIM
     Indication: ANTIFUNGAL PROPHYLAXIS
     Route: 048
  17. SENNOSIDE [Concomitant]
     Active Substance: SENNOSIDES
     Dosage: 36 MG, 29/FEB/2016
     Route: 048
     Dates: start: 20160229, end: 20160313
  18. WARFARIN [Concomitant]
     Active Substance: WARFARIN
     Route: 048
     Dates: start: 20160311, end: 20160327
  19. WARFARIN [Concomitant]
     Active Substance: WARFARIN
     Route: 048
     Dates: start: 20160414, end: 20160420
  20. MYCOPHENOLATE MOFETIL. [Suspect]
     Active Substance: MYCOPHENOLATE MOFETIL
     Indication: RENAL TRANSPLANT
     Route: 048
     Dates: start: 20160608
  21. MEDROL [Suspect]
     Active Substance: METHYLPREDNISOLONE
     Indication: NEPHROTIC SYNDROME
     Dosage: 4-60 MG, DOSE INTERVAL UNCERTAINTY
     Route: 048
     Dates: start: 20160203
  22. NEORAL [Suspect]
     Active Substance: CYCLOSPORINE
     Indication: PROPHYLAXIS AGAINST TRANSPLANT REJECTION
     Route: 048
  23. NEORAL [Suspect]
     Active Substance: CYCLOSPORINE
     Dosage: (50-190 MG)
     Route: 048
     Dates: start: 20070203
  24. AMLODIPINE BESILATE [Concomitant]
     Active Substance: AMLODIPINE BESYLATE
     Dosage: 5 MG, 11/MAR/2016, 7.5 MG, 26MAY/2016
     Route: 048
     Dates: start: 20160311, end: 20160525
  25. GLUFAST [Concomitant]
     Active Substance: MITIGLINIDE
     Route: 048
     Dates: start: 20170327
  26. WARFARIN [Concomitant]
     Active Substance: WARFARIN
     Route: 048
     Dates: start: 20160421, end: 20160706
  27. RITUXIMAB. [Suspect]
     Active Substance: RITUXIMAB
     Indication: NEPHROTIC SYNDROME
     Route: 042
     Dates: start: 20160216, end: 20160216
  28. NEORAL [Suspect]
     Active Substance: CYCLOSPORINE
     Indication: NEPHROTIC SYNDROME
     Dosage: (50-190 MG)
     Route: 048
     Dates: start: 20160203
  29. POLARAMINE [Concomitant]
     Active Substance: DEXCHLORPHENIRAMINE MALEATE
     Dosage: 01/MAR/2016, 25/MAR/2016, 14/APR/2016
     Route: 042
     Dates: start: 20160325, end: 20160325
  30. TEPRENONE [Concomitant]
     Active Substance: TEPRENONE
     Indication: CHRONIC GASTRITIS
     Route: 048
  31. AMLODIPINE BESILATE [Concomitant]
     Active Substance: AMLODIPINE BESYLATE
     Indication: HYPERTENSION
     Dosage: 5 MG, 11/MAR/2016, 7.5 MG, 26MAY/2016
     Route: 048
     Dates: start: 20160310, end: 20160310
  32. TRAZENTA [Concomitant]
     Active Substance: LINAGLIPTIN
     Indication: DIABETES MELLITUS
     Route: 048
     Dates: start: 20160131
  33. HEPARIN SODIUM. [Concomitant]
     Active Substance: HEPARIN SODIUM
     Indication: DEEP VEIN THROMBOSIS
     Route: 042
     Dates: start: 20160222, end: 20160225
  34. WARFARIN [Concomitant]
     Active Substance: WARFARIN
     Route: 048
     Dates: start: 20160303, end: 20160310
  35. DIART [Concomitant]
     Active Substance: AZOSEMIDE
     Route: 048
     Dates: start: 20171026
  36. RITUXIMAB. [Suspect]
     Active Substance: RITUXIMAB
     Route: 042
     Dates: start: 20160325, end: 20160325
  37. MYCOPHENOLATE MOFETIL. [Suspect]
     Active Substance: MYCOPHENOLATE MOFETIL
     Route: 048
     Dates: start: 20160609, end: 20160706
  38. AMLODIPINE BESILATE [Concomitant]
     Active Substance: AMLODIPINE BESYLATE
     Dosage: 5 MG, 11/MAR/2016, 7.5 MG, 26MAY/2016
     Route: 048
     Dates: start: 20161117
  39. ALENDRONATE [Concomitant]
     Active Substance: ALENDRONATE SODIUM
     Indication: OSTEOPOROSIS
     Route: 048
     Dates: start: 20160204, end: 20160331
  40. POLARAMINE [Concomitant]
     Active Substance: DEXCHLORPHENIRAMINE MALEATE
     Dosage: 01/MAR/2016, 25/MAR/2016, 14/APR/2016
     Route: 042
     Dates: start: 20160525, end: 20160525
  41. GLUFAST [Concomitant]
     Active Substance: MITIGLINIDE
     Indication: DIABETES MELLITUS
     Route: 048
     Dates: start: 20160307, end: 20160407
  42. DIART [Concomitant]
     Active Substance: AZOSEMIDE
     Indication: OEDEMA DUE TO RENAL DISEASE
     Route: 048
     Dates: start: 20160225, end: 20160307
  43. DIART [Concomitant]
     Active Substance: AZOSEMIDE
     Route: 048
     Dates: start: 20160609, end: 20170125
  44. RITUXIMAB. [Suspect]
     Active Substance: RITUXIMAB
     Route: 042
     Dates: start: 20160301, end: 20160301
  45. WARFARIN [Concomitant]
     Active Substance: WARFARIN
     Indication: DEEP VEIN THROMBOSIS
     Route: 048
     Dates: start: 20160222, end: 20160223
  46. DIART [Concomitant]
     Active Substance: AZOSEMIDE
     Route: 048
     Dates: start: 20160308, end: 20160608
  47. CARDENALIN [Concomitant]
     Active Substance: DOXAZOSIN MESYLATE
     Route: 048
  48. POLARAMINE [Concomitant]
     Active Substance: DEXCHLORPHENIRAMINE MALEATE
     Dosage: 01/MAR/2016, 25/MAR/2016, 14/APR/2016
     Route: 042
     Dates: start: 20160414, end: 20160414
  49. AMLODIPINE BESILATE [Concomitant]
     Active Substance: AMLODIPINE BESYLATE
     Dosage: 5 MG, 11/MAR/2016, 7.5 MG, 26MAY/2016
     Route: 048
     Dates: start: 20160526, end: 20161116
  50. SENNOSIDE [Concomitant]
     Active Substance: SENNOSIDES
     Indication: CONSTIPATION
     Dosage: 36 MG, 29/FEB/2016
     Route: 048
     Dates: start: 20160207, end: 20160221
  51. WARFARIN [Concomitant]
     Active Substance: WARFARIN
     Route: 048
     Dates: start: 20160707, end: 20160818
  52. FEBURIC [Concomitant]
     Active Substance: FEBUXOSTAT
     Route: 048

REACTIONS (11)
  - Cytomegalovirus infection [Recovered/Resolved]
  - Off label use [Unknown]
  - Hypokalaemia [Not Recovered/Not Resolved]
  - Herpes simplex [Recovering/Resolving]
  - Gastrooesophageal reflux disease [Recovered/Resolved]
  - Constipation [Recovered/Resolved]
  - Periodontitis [Recovering/Resolving]
  - Headache [Recovered/Resolved]
  - Herpes zoster [Recovered/Resolved]
  - Hypokalaemia [Recovered/Resolved]
  - Insomnia [Recovering/Resolving]

NARRATIVE: CASE EVENT DATE: 20160218
